FAERS Safety Report 9926050 (Version 1)
Quarter: 2014Q1

REPORT INFORMATION
  Report Type: Spontaneous
  Country: US (occurrence: US)
  Receive Date: 20140226
  Receipt Date: 20140226
  Transmission Date: 20141002
  Serious: Yes (Hospitalization, Other)
  Sender: FDA-Public Use
  Company Number: US-ELI_LILLY_AND_COMPANY-US201402006247

PATIENT
  Age: 74 Year
  Sex: Male

DRUGS (2)
  1. HUMULIN 30% REGULAR, 70% NPH [Suspect]
     Indication: DIABETES MELLITUS
     Dosage: 40 U, EACH MORNING
     Route: 065
     Dates: start: 2012
  2. HUMULIN 30% REGULAR, 70% NPH [Suspect]
     Dosage: 20 U, EACH EVENING
     Route: 065
     Dates: start: 2012

REACTIONS (8)
  - Spinal cord injury [Recovering/Resolving]
  - Spinal fracture [Unknown]
  - Cerebrospinal fluid leakage [Unknown]
  - Fall [Unknown]
  - Headache [Unknown]
  - Muscular weakness [Recovered/Resolved]
  - Blood glucose increased [Unknown]
  - Malaise [Unknown]
